FAERS Safety Report 6638091-X (Version None)
Quarter: 2010Q1

REPORT INFORMATION
  Report Type: 
  Country: None (occurrence: None)
  Receive Date: 20100317
  Receipt Date: 20100304
  Transmission Date: 20100710
  Serious: No
  Sender: FDA-Public Use
  Company Number: US-B.I. PHARMACEUTICALS,INC./RIDGEFIELD-2010-BP-01425BP

PATIENT
  Sex: Female

DRUGS (8)
  1. SPIRIVA [Suspect]
     Indication: CHRONIC OBSTRUCTIVE PULMONARY DISEASE
     Dosage: 18 MCG
     Route: 055
     Dates: start: 20060101
  2. LISINOPRIL [Concomitant]
     Dosage: 20 MG
  3. DILTIAZEM HCL [Concomitant]
     Dosage: 240 MG
  4. ASPIRIN [Concomitant]
     Dosage: 81 MG
  5. STOOL SOFTENER [Concomitant]
  6. MIRALAX [Concomitant]
  7. ACID REDUCER [Concomitant]
  8. CYANOCOBALAMIN [Concomitant]

REACTIONS (1)
  - CONSTIPATION [None]
